FAERS Safety Report 18335514 (Version 2)
Quarter: 2020Q4

REPORT INFORMATION
  Report Type: Spontaneous
  Country: US (occurrence: US)
  Receive Date: 20201001
  Receipt Date: 20201016
  Transmission Date: 20210113
  Serious: No
  Sender: FDA-Public Use
  Company Number: US-VERTEX PHARMACEUTICALS-2020-019216

PATIENT
  Age: 8 Year
  Sex: Female

DRUGS (11)
  1. ALBUTEROL [SALBUTAMOL] [Concomitant]
     Active Substance: ALBUTEROL
     Dosage: 2 PUFFS EVERY 4 HOURS, 90 MICROGRAM
     Route: 048
  2. MIRALAX [Concomitant]
     Active Substance: POLYETHYLENE GLYCOL 3350
     Dosage: 17 GRAM
     Route: 048
  3. URSODIOL. [Concomitant]
     Active Substance: URSODIOL
     Dosage: 500 MILLIGRAM, QD
     Route: 048
  4. DORNASE ALFA. [Concomitant]
     Active Substance: DORNASE ALFA
     Dosage: 1 MILLIGRAM PER MILLILITRE, QD
  5. SODIUM CHLORIDE. [Concomitant]
     Active Substance: SODIUM CHLORIDE
     Dosage: UNK, BID
  6. LIDOCAINE. [Concomitant]
     Active Substance: LIDOCAINE
     Route: 061
  7. RIFAXIMIN. [Concomitant]
     Active Substance: RIFAXIMIN
     Dosage: 200 MILLIGRAM, TID
     Route: 048
  8. TRIKAFTA [Suspect]
     Active Substance: ELEXACAFTOR\IVACAFTOR\TEZACAFTOR
     Indication: CYSTIC FIBROSIS
     Dosage: 1 TAB (100 MG ELEXA, 50 MG TEZA, 75 MG IVA) AM, ONE HALF TAB (150 MG IVA) PM
     Route: 048
     Dates: start: 20200818
  9. AZITHROMYCIN ANHYDROUS. [Concomitant]
     Active Substance: AZITHROMYCIN ANHYDROUS
     Dosage: 1 TABLET ON MON, WED AND FRI, QD
     Route: 048
  10. RELIZORB [Concomitant]
     Dosage: 1 CARTRIDGE GIVEN WITH NIGHT TIME FEEDS
  11. CREON [Concomitant]
     Active Substance: PANCRELIPASE AMYLASE\PANCRELIPASE LIPASE\PANCRELIPASE PROTEASE
     Dosage: 18 CAPSULES PE DAY
     Route: 048

REACTIONS (1)
  - Off label use [Unknown]
